FAERS Safety Report 22005918 (Version 1)
Quarter: 2023Q1

REPORT INFORMATION
  Report Type: Spontaneous
  Country: US (occurrence: None)
  Receive Date: 20230216
  Receipt Date: 20230216
  Transmission Date: 20230418
  Serious: Yes (Disabling)
  Sender: FDA-Public Use
  Company Number: None

PATIENT
  Sex: Male

DRUGS (2)
  1. PROHANCE [Suspect]
     Active Substance: GADOTERIDOL
     Indication: Magnetic resonance imaging
     Dosage: OTHER FREQUENCY : ONCE;?
     Route: 040
  2. MULTIHANCE [Suspect]
     Active Substance: GADOBENATE DIMEGLUMINE
     Indication: Magnetic resonance imaging
     Dosage: OTHER FREQUENCY : ONCE;?
     Route: 040

REACTIONS (9)
  - Skin tightness [None]
  - Skin disorder [None]
  - Grip strength decreased [None]
  - Loss of personal independence in daily activities [None]
  - Gait disturbance [None]
  - Dysstasia [None]
  - Skin discolouration [None]
  - Nephrogenic systemic fibrosis [None]
  - Joint range of motion measurement [None]
